FAERS Safety Report 6233895-X (Version None)
Quarter: 2009Q2

REPORT INFORMATION
  Report Type: 
  Country: None (occurrence: None)
  Receive Date: 20090616
  Receipt Date: 20090616
  Transmission Date: 20091009
  Serious: Yes (Life-Threatening)
  Sender: FDA-Public Use
  Company Number: None

PATIENT
  Age: 37 Year
  Sex: Male
  Weight: 63.5036 kg

DRUGS (2)
  1. BACTRIM [Suspect]
     Indication: STAPHYLOCOCCAL SKIN INFECTION
     Dosage: ONE TABLET EVERY 12 HOURS PO
     Route: 048
     Dates: start: 20090307, end: 20090321
  2. BACTRIM [Suspect]
     Indication: STAPHYLOCOCCAL SKIN INFECTION
     Dosage: ONE TABLET EVERY 12 HOURS PO
     Route: 048
     Dates: start: 20090407, end: 20090408

REACTIONS (5)
  - BACK PAIN [None]
  - DRUG HYPERSENSITIVITY [None]
  - MUSCLE SPASMS [None]
  - RECURRING SKIN BOILS [None]
  - STAPHYLOCOCCAL SKIN INFECTION [None]
